FAERS Safety Report 8725329 (Version 4)
Quarter: 2012Q4

REPORT INFORMATION
  Report Type: 
  Country: US (occurrence: US)
  Receive Date: 20120815
  Receipt Date: 20121120
  Transmission Date: 20130627
  Serious: Yes (Hospitalization, Other)
  Sender: FDA-Public Use
  Company Number: US-ACTELION-A-NJ2012-69895

PATIENT
  Age: 78 Year
  Sex: Female

DRUGS (4)
  1. VELETRI [Suspect]
     Indication: PULMONARY HYPERTENSION
     Dosage: 67.5 ng/kg, per min
     Route: 041
     Dates: start: 20101112
  2. ADCIRCA [Concomitant]
  3. LETAIRIS [Concomitant]
  4. COUMADIN [Concomitant]

REACTIONS (8)
  - Pneumonia [Unknown]
  - Abdominal pain upper [Unknown]
  - Catheter placement [Unknown]
  - Breast cancer [Recovering/Resolving]
  - Chemotherapy [Recovering/Resolving]
  - Catheter site haemorrhage [Recovering/Resolving]
  - Catheter site inflammation [Recovering/Resolving]
  - Catheter site discharge [Not Recovered/Not Resolved]
